FAERS Safety Report 21768845 (Version 1)
Quarter: 2022Q4

REPORT INFORMATION
  Report Type: Spontaneous
  Country: US (occurrence: None)
  Receive Date: 20221222
  Receipt Date: 20221222
  Transmission Date: 20230112
  Serious: No
  Sender: FDA-Public Use
  Company Number: None

PATIENT
  Age: 44 Year
  Sex: Female
  Weight: 93.44 kg

DRUGS (15)
  1. NOVOLOG [Suspect]
     Active Substance: INSULIN ASPART
     Dosage: OTHER STRENGTH : 100UNITS/ML;?OTHER QUANTITY : 25 UNITS;?FREQUENCY : 3 TIMES A DAY;?
     Route: 058
  2. AMLODIPINE [Concomitant]
     Active Substance: AMLODIPINE BESYLATE
  3. BD ULTRAFINE PEN NEEDLES [Concomitant]
  4. BIOTIN [Concomitant]
     Active Substance: BIOTIN
  5. DICCOMINE [Concomitant]
  6. FAMOTIDINE [Concomitant]
     Active Substance: FAMOTIDINE
  7. FERROUS SULFATE [Concomitant]
     Active Substance: FERROUS SULFATE
  8. FOLIC ACID [Concomitant]
     Active Substance: FOLIC ACID
  9. JARDIANCE [Concomitant]
     Active Substance: EMPAGLIFLOZIN
  10. LISINOPRIL [Concomitant]
     Active Substance: LISINOPRIL
  11. METFORMIN [Concomitant]
     Active Substance: METFORMIN HYDROCHLORIDE
  12. OZEMPIC [Concomitant]
     Active Substance: SEMAGLUTIDE
  13. SAFYRAL ORAL TABLET [Concomitant]
  14. TRESIBA [Concomitant]
     Active Substance: INSULIN DEGLUDEC
  15. VITAMINS [Concomitant]
     Active Substance: VITAMINS

REACTIONS (2)
  - Drug ineffective [None]
  - Diabetes mellitus inadequate control [None]
